FAERS Safety Report 13568679 (Version 1)
Quarter: 2017Q2

REPORT INFORMATION
  Report Type: Spontaneous
  Country: US (occurrence: US)
  Receive Date: 20170520
  Receipt Date: 20170520
  Transmission Date: 20170830
  Serious: Yes (Life-Threatening)
  Sender: FDA-Public Use
  Company Number: None

PATIENT
  Age: 20 Year
  Sex: Male
  Weight: 72 kg

DRUGS (5)
  1. AMOXICILLIN. [Concomitant]
     Active Substance: AMOXICILLIN
  2. CHLORHEXIDINE [Concomitant]
     Active Substance: CHLORHEXIDINE
  3. OXYCODONE-ACETAMINOPHEN [Suspect]
     Active Substance: ACETAMINOPHEN\OXYCODONE HYDROCHLORIDE
     Indication: PAIN
     Dosage: ?          QUANTITY:1 TABLET(S);?
     Route: 048
     Dates: start: 20170518, end: 20170518
  4. MEDROL [Concomitant]
     Active Substance: METHYLPREDNISOLONE
  5. IBUPROPHEN [Concomitant]
     Active Substance: IBUPROFEN

REACTIONS (7)
  - Screaming [None]
  - Viral upper respiratory tract infection [None]
  - Pallor [None]
  - Fall [None]
  - Cold sweat [None]
  - Shock [None]
  - Hypoacusis [None]

NARRATIVE: CASE EVENT DATE: 20170518
